FAERS Safety Report 5466834-X (Version None)
Quarter: 2007Q3

REPORT INFORMATION
  Report Type: 
  Country: None (occurrence: None)
  Receive Date: 20070920
  Receipt Date: 20070903
  Transmission Date: 20080115
  Serious: Yes (Other)
  Sender: FDA-Public Use
  Company Number: 20070228 /

PATIENT
  Age: 22 Year
  Sex: Female

DRUGS (2)
  1. VENOFER [Suspect]
     Indication: SERUM FERRITIN DECREASED
     Dosage: 200 MG OVER 10 MINUTES INTRAVENOUS
     Route: 042
     Dates: start: 20070725, end: 20070725
  2. VENOFER [Suspect]
     Indication: SERUM FERRITIN DECREASED
     Dosage: 200 MG OVER 10 MINUTES INTRAVENOUS
     Route: 042
     Dates: start: 20070803, end: 20070803

REACTIONS (2)
  - CHROMATURIA [None]
  - MICTURITION URGENCY [None]
